FAERS Safety Report 7062722 (Version 3)
Quarter: 2019Q1

REPORT INFORMATION
  Report Type: Spontaneous
  Country: ES (occurrence: ES)
  Receive Date: 20090724
  Receipt Date: 20190219
  Transmission Date: 20190418
  Serious: Yes (Other)
  Sender: FDA-Public Use
  Company Number: ES-PFIZER INC-2009239991

PATIENT
  Age: 49 Year
  Sex: Female

DRUGS (1)
  1. CHAMPIX [Suspect]
     Active Substance: VARENICLINE TARTRATE
     Dosage: 0.5 MG, UNK
     Dates: start: 200807, end: 200809

REACTIONS (2)
  - Myocarditis [Unknown]
  - Cardiac failure [Unknown]

NARRATIVE: CASE EVENT DATE: 200810
